FAERS Safety Report 4447228-2 (Version None)
Quarter: 2004Q3

REPORT INFORMATION
  Report Type: 
  Country: None (occurrence: None)
  Receive Date: 20040813
  Receipt Date: 20040701
  Transmission Date: 20050211
  Serious: No
  Sender: FDA-Public Use
  Company Number: S04-USA-04020-01

PATIENT
  Sex: Female

DRUGS (4)
  1. NAMENDA [Suspect]
     Indication: DEMENTIA ALZHEIMER'S TYPE
     Dosage: 5 MG QD PO
     Route: 048
     Dates: start: 20040701
  2. VASOTEC [Concomitant]
  3. LEVOXYL [Concomitant]
  4. XANAX [Concomitant]

REACTIONS (2)
  - NERVOUSNESS [None]
  - TREMOR [None]
